FAERS Safety Report 6381854-9 (Version None)
Quarter: 2009Q3

REPORT INFORMATION
  Report Type: 
  Country: None (occurrence: None)
  Receive Date: 20090930
  Receipt Date: 20090924
  Transmission Date: 20100115
  Serious: Yes (Hospitalization)
  Sender: FDA-Public Use
  Company Number: FR-JNJFOC-20090907349

PATIENT
  Age: 89 Year
  Sex: Male

DRUGS (9)
  1. TAVANIC [Suspect]
     Route: 042
     Dates: start: 20090730, end: 20090809
  2. TAVANIC [Suspect]
     Route: 042
     Dates: start: 20090730, end: 20090809
  3. TAVANIC [Suspect]
     Indication: LEGIONELLA INFECTION
     Route: 042
     Dates: start: 20090730, end: 20090809
  4. PREVISCAN (FLUINDIONE) [Interacting]
     Route: 048
  5. PREVISCAN (FLUINDIONE) [Interacting]
     Indication: LEGIONELLA INFECTION
     Route: 048
  6. ACETAMINOPHEN [Suspect]
     Indication: PYREXIA
     Route: 048
     Dates: start: 20090731, end: 20090801
  7. ACETAMINOPHEN [Suspect]
     Indication: PYREXIA
     Route: 042
     Dates: start: 20090730, end: 20090730
  8. ANDROCUR [Concomitant]
     Route: 065
  9. BISOPROLOL FUMARATE [Concomitant]
     Route: 065

REACTIONS (3)
  - DRUG INTERACTION [None]
  - INTERNATIONAL NORMALISED RATIO INCREASED [None]
  - MELAENA [None]
